FAERS Safety Report 7297897-7 (Version None)
Quarter: 2011Q1

REPORT INFORMATION
  Report Type: 
  Country: None (occurrence: None)
  Receive Date: 20110217
  Receipt Date: 20110110
  Transmission Date: 20110831
  Serious: No
  Sender: FDA-Public Use
  Company Number: US-KINGPHARMUSA00001-K201100059

PATIENT
  Sex: Female

DRUGS (11)
  1. CALCIUM [Concomitant]
  2. VITAMIN D [Concomitant]
  3. POTASSIUM CHLORIDE [Concomitant]
  4. ASPIRIN [Concomitant]
  5. HALCION [Concomitant]
  6. CLONIDINE [Concomitant]
     Dosage: .1 UNK, QD
     Route: 048
  7. FLECTOR [Suspect]
     Indication: BACK PAIN
     Dosage: 1 PATCH, SINGLE
     Route: 061
     Dates: start: 20110101, end: 20110101
  8. HYDROCHLOROTHIAZIDE [Concomitant]
     Dosage: 25 MG, QD
  9. LISINOPRIL [Concomitant]
     Dosage: 10 MG, UNK
  10. VERAPAMIL [Concomitant]
     Dosage: 180 MG, QD
  11. FOSAMAX [Concomitant]

REACTIONS (1)
  - BLOOD PRESSURE SYSTOLIC INCREASED [None]
